FAERS Safety Report 6610646-8 (Version None)
Quarter: 2010Q1

REPORT INFORMATION
  Report Type: 
  Country: None (occurrence: None)
  Receive Date: 20100302
  Receipt Date: 20100219
  Transmission Date: 20100710
  Serious: Yes (Hospitalization)
  Sender: FDA-Public Use
  Company Number: A0844571A

PATIENT
  Age: 38 Year
  Sex: Female
  Weight: 57.3 kg

DRUGS (8)
  1. PAZOPANIB [Suspect]
     Indication: SARCOMA
     Route: 048
     Dates: start: 20100119
  2. LITHIUM [Concomitant]
     Indication: BIPOLAR DISORDER
     Dosage: 300MG TWICE PER DAY
     Route: 048
     Dates: start: 20010101
  3. WELLBUTRIN SR [Concomitant]
     Indication: BIPOLAR DISORDER
     Dosage: 150MG TWICE PER DAY
     Route: 048
     Dates: start: 19990101
  4. ADVAIR DISKUS 100/50 [Concomitant]
     Indication: ASTHMA
     Route: 055
     Dates: start: 20090701
  5. ALBUTEROL [Concomitant]
     Indication: ASTHMA
     Route: 055
     Dates: start: 20091228
  6. SINGULAIR [Concomitant]
     Indication: ASTHMA
     Dosage: 10MG PER DAY
     Route: 048
     Dates: start: 20091228
  7. PREDNISONE [Concomitant]
     Dosage: 10MG PER DAY
     Route: 048
     Dates: start: 20100119
  8. KLONOPIN [Concomitant]
     Indication: ANXIETY
     Dosage: 1MG THREE TIMES PER DAY
     Route: 048
     Dates: start: 20100115

REACTIONS (5)
  - CHEST PAIN [None]
  - CONFUSIONAL STATE [None]
  - DECREASED APPETITE [None]
  - DYSPNOEA [None]
  - HALLUCINATION [None]
